FAERS Safety Report 25717330 (Version 2)
Quarter: 2025Q4

REPORT INFORMATION
  Report Type: Spontaneous
  Country: US (occurrence: US)
  Receive Date: 20250822
  Receipt Date: 20251126
  Transmission Date: 20260118
  Serious: No
  Sender: SANOFI AVENTIS
  Company Number: US-SA-2025SA251007

PATIENT
  Sex: Female
  Weight: 68.18 kg

DRUGS (3)
  1. DUPIXENT [Suspect]
     Active Substance: DUPILUMAB
     Indication: Eosinophilic oesophagitis
     Dosage: 300 MG, QOW
     Route: 058
  2. DUPIXENT [Suspect]
     Active Substance: DUPILUMAB
     Dosage: 300 MG, QW
     Route: 058
  3. SIMLANDI [Concomitant]
     Active Substance: ADALIMUMAB-RYVK
     Dosage: UNK

REACTIONS (5)
  - Pain [Unknown]
  - Hypertension [Unknown]
  - Stress [Unknown]
  - Asthenia [Unknown]
  - Eosinophilic oesophagitis [Unknown]
